FAERS Safety Report 10560225 (Version 1)
Quarter: 2014Q4

REPORT INFORMATION
  Report Type: Spontaneous
  Country: US (occurrence: None)
  Receive Date: 20141030
  Receipt Date: 20141030
  Transmission Date: 20150529
  Serious: Yes (Death)
  Sender: FDA-Public Use
  Company Number: OTH-PAT-2011024

PATIENT
  Age: 65 Year
  Sex: Male

DRUGS (12)
  1. ASPIRIN - ACETYLSALICYCLIC ACID [Concomitant]
  2. LASIX - FUROSEMIDE [Concomitant]
  3. LISINOPRIL. [Concomitant]
     Active Substance: LISINOPRIL
  4. FERROUS SULFATE [Concomitant]
     Active Substance: FERROUS SULFATE\FERROUS SULFATE, DRIED
  5. HYDROCODONE-ACETAMINOPHENE [Concomitant]
  6. WARFAARIN [Concomitant]
  7. CYSTADANE [Suspect]
     Active Substance: BETAINE
     Indication: HOMOCYSTINURIA
     Dosage: EVERY DAY
     Dates: start: 20101222
  8. NEURONTIN - GABAPENTIN [Concomitant]
  9. TESTOSTERONE CIPIONATE [Concomitant]
     Active Substance: TESTOSTERONE
  10. VITAMIN B12 [Concomitant]
     Active Substance: CYANOCOBALAMIN
  11. FOLIC ACID. [Concomitant]
     Active Substance: FOLIC ACID
  12. TERAZOSIN [Concomitant]
     Active Substance: TERAZOSIN\TERAZOSIN HYDROCHLORIDE

REACTIONS (1)
  - Cardio-respiratory arrest [None]

NARRATIVE: CASE EVENT DATE: 20110308
